FAERS Safety Report 8369756-X (Version None)
Quarter: 2012Q1

REPORT INFORMATION
  Report Type: 
  Country: None (occurrence: None)
  Receive Date: 20120323
  Receipt Date: 20110916
  Transmission Date: 20120608
  Serious: Yes (Other)
  Sender: FDA-Public Use
  Company Number: 163-21880-11080285

PATIENT
  Age: 70 Year
  Sex: Female

DRUGS (8)
  1. FLONASE [Concomitant]
  2. LIPITOR [Concomitant]
  3. LEVOTHYROID (LEVOTHYROXINE SODIUM) [Concomitant]
  4. REVLIMID [Suspect]
     Indication: MULTIPLE MYELOMA
     Dosage: 10 MG, 1 IN 1 D, PO
     Route: 048
     Dates: start: 20110627, end: 20110716
  5. ANTIVERT (MECLOZINE) [Concomitant]
  6. ASPIRIN [Concomitant]
  7. FISH OIL [Concomitant]
  8. NEURONTIN [Concomitant]

REACTIONS (1)
  - DEEP VEIN THROMBOSIS [None]
